FAERS Safety Report 11906855 (Version 1)
Quarter: 2016Q1

REPORT INFORMATION
  Report Type: Spontaneous
  Country: ES (occurrence: ES)
  Receive Date: 20160111
  Receipt Date: 20160111
  Transmission Date: 20160526
  Serious: Yes (Other)
  Sender: FDA-Public Use
  Company Number: ES-MYLANLABS-2016M1000760

PATIENT

DRUGS (2)
  1. PACLITAXEL. [Suspect]
     Active Substance: PACLITAXEL
     Indication: PANCREATIC CARCINOMA
     Dosage: 125 MG/M2 ON DAYS 1, 8, AND 15 EVERY 28 DAYS
     Route: 065
  2. GEMCITABINE [Suspect]
     Active Substance: GEMCITABINE\GEMCITABINE HYDROCHLORIDE
     Indication: PANCREATIC CARCINOMA
     Dosage: 1000 MG/M2 ON DAYS 1, 8, AND 15 EVERY 28 DAYS
     Route: 065

REACTIONS (4)
  - Leukopenia [Unknown]
  - Neuropathy peripheral [Unknown]
  - Asthenia [Unknown]
  - Anaemia [Unknown]
